FAERS Safety Report 7981893-8 (Version None)
Quarter: 2011Q4

REPORT INFORMATION
  Report Type: 
  Country: None (occurrence: None)
  Receive Date: 20111215
  Receipt Date: 20111208
  Transmission Date: 20120403
  Serious: Yes (Life-Threatening)
  Sender: FDA-Public Use
  Company Number: GB-UCBSA-047362

PATIENT
  Age: 29 Year
  Sex: Male
  Weight: 45 kg

DRUGS (4)
  1. METHADONE HCL [Concomitant]
     Dates: start: 20111108
  2. AMOXICILLIN [Concomitant]
     Dates: start: 20111110, end: 20111117
  3. ACETAMINOPHEN AND CODEINE PHOSPHATE [Suspect]
     Dosage: DOSE: UNKNOWN
     Dates: start: 20111129
  4. ACETAMINOPHEN [Concomitant]
     Dates: start: 20111116, end: 20111121

REACTIONS (1)
  - THYROID CANCER [None]
